FAERS Safety Report 20632193 (Version 5)
Quarter: 2023Q2

REPORT INFORMATION
  Report Type: Report from Study
  Country: DE (occurrence: DE)
  Receive Date: 20220324
  Receipt Date: 20230511
  Transmission Date: 20230722
  Serious: Yes (Other)
  Sender: FDA-Public Use
  Company Number: DE-NOVARTISPH-NVSC2021DE108267

PATIENT
  Sex: Male
  Weight: 78.2 kg

DRUGS (16)
  1. PROMACTA [Suspect]
     Active Substance: ELTROMBOPAG OLAMINE
     Indication: Immune thrombocytopenia
     Dosage: 25 MG, QD (TABLET)
     Route: 048
     Dates: start: 20210118, end: 20210203
  2. PROMACTA [Suspect]
     Active Substance: ELTROMBOPAG OLAMINE
     Dosage: 50 MG, QD (TABLET)
     Route: 048
     Dates: start: 20210204, end: 20210414
  3. PROMACTA [Suspect]
     Active Substance: ELTROMBOPAG OLAMINE
     Dosage: 25 MG, QD (TABLET)
     Route: 048
     Dates: start: 20210415, end: 20210427
  4. PROMACTA [Suspect]
     Active Substance: ELTROMBOPAG OLAMINE
     Dosage: 50 MG, QD (TABLET)
     Route: 048
     Dates: start: 20210519, end: 20210527
  5. PROMACTA [Suspect]
     Active Substance: ELTROMBOPAG OLAMINE
     Dosage: 25 MG, QD (TABLET)
     Route: 048
     Dates: start: 20210528, end: 20210607
  6. PROMACTA [Suspect]
     Active Substance: ELTROMBOPAG OLAMINE
     Dosage: 25 MG, QOD (TABLET)
     Route: 048
     Dates: start: 20210608, end: 20210621
  7. PROMACTA [Suspect]
     Active Substance: ELTROMBOPAG OLAMINE
     Dosage: 25 MG, QD (TABLET)
     Route: 048
     Dates: start: 20210622, end: 20211017
  8. PROMACTA [Suspect]
     Active Substance: ELTROMBOPAG OLAMINE
     Dosage: 25 MG QD (TABLET)
     Route: 048
     Dates: start: 20211018, end: 20211212
  9. PROMACTA [Suspect]
     Active Substance: ELTROMBOPAG OLAMINE
     Dosage: 25 MG, QD (TABLET)
     Route: 048
     Dates: start: 20211213, end: 20220209
  10. PROMACTA [Suspect]
     Active Substance: ELTROMBOPAG OLAMINE
     Dosage: EVERY 2 DAYS PAUSE BETWEEN
     Route: 048
     Dates: start: 20220210, end: 20221121
  11. PROMACTA [Suspect]
     Active Substance: ELTROMBOPAG OLAMINE
     Dosage: PAUSE EVERY OTHER DAY
     Route: 048
     Dates: start: 20221122
  12. CELECOXIB [Concomitant]
     Active Substance: CELECOXIB
     Indication: Osteoarthritis
     Dosage: 100 MG, QD
     Route: 048
     Dates: start: 20230427
  13. CELECOXIB [Concomitant]
     Active Substance: CELECOXIB
     Indication: Arthralgia
  14. ZEEL [Concomitant]
     Indication: Osteoarthritis
     Dosage: UNK UNK, QD
     Route: 048
     Dates: start: 20221218
  15. ZEEL [Concomitant]
     Indication: Arthralgia
     Dosage: UNK
     Route: 065
     Dates: end: 20230426
  16. XARELTO [Concomitant]
     Active Substance: RIVAROXABAN
     Indication: Product used for unknown indication
     Dosage: 10 MG, UNKNOWN
     Route: 048
     Dates: start: 20210819, end: 20211017

REACTIONS (18)
  - Macular hole [Not Recovered/Not Resolved]
  - Condition aggravated [Not Recovered/Not Resolved]
  - Visual impairment [Not Recovered/Not Resolved]
  - Flatulence [Not Recovered/Not Resolved]
  - Gait disturbance [Recovered/Resolved]
  - Diarrhoea [Recovered/Resolved]
  - Diarrhoea [Recovered/Resolved]
  - Diarrhoea [Recovered/Resolved]
  - Dizziness [Recovered/Resolved]
  - Weight decreased [Recovering/Resolving]
  - Abdominal distension [Recovering/Resolving]
  - Sleep disorder [Recovered/Resolved]
  - Toothache [Recovered/Resolved]
  - Toothache [Recovered/Resolved]
  - Ear pain [Recovered/Resolved]
  - Anxiety [Recovered/Resolved]
  - Anxiety [Recovered/Resolved]
  - COVID-19 [Recovered/Resolved]

NARRATIVE: CASE EVENT DATE: 20210204
